FAERS Safety Report 15740288 (Version 1)
Quarter: 2018Q4

REPORT INFORMATION
  Report Type: Spontaneous
  Country: LT (occurrence: LT)
  Receive Date: 20181219
  Receipt Date: 20181219
  Transmission Date: 20190205
  Serious: Yes (Congenital Anomaly, Other)
  Sender: FDA-Public Use
  Company Number: LT-VIIV HEALTHCARE LIMITED-LT2018GSK228110

PATIENT
  Sex: Male

DRUGS (1)
  1. TRIUMEQ [Suspect]
     Active Substance: ABACAVIR SULFATE\DOLUTEGRAVIR SODIUM\LAMIVUDINE
     Indication: HIV INFECTION
     Dosage: UNK
     Route: 064
     Dates: start: 20171215

REACTIONS (11)
  - Oedema peripheral [Unknown]
  - Atrial septal defect [Unknown]
  - Congenital skin dimples [Unknown]
  - Microcephaly [Unknown]
  - Clinodactyly [Unknown]
  - Coloboma [Unknown]
  - Head circumference abnormal [Unknown]
  - Congenital nail disorder [Unknown]
  - Developmental hip dysplasia [Unknown]
  - Congenital cerebrovascular anomaly [Unknown]
  - Foetal exposure during pregnancy [Unknown]
